FAERS Safety Report 10069456 (Version 1)
Quarter: 2014Q2

REPORT INFORMATION
  Report Type: Spontaneous
  Country: JP (occurrence: JP)
  Receive Date: 20140410
  Receipt Date: 20140410
  Transmission Date: 20141212
  Serious: Yes (Other)
  Sender: FDA-Public Use
  Company Number: JP-AMGEN INC.-JPNSP2014024881

PATIENT
  Age: 57 Year
  Sex: Female
  Weight: 40 kg

DRUGS (14)
  1. PRALIA [Suspect]
     Indication: OSTEOPOROSIS
     Dosage: 60 MG, UNK
     Route: 058
     Dates: start: 20130930, end: 20130930
  2. PURSENNID                          /00142207/ [Concomitant]
     Dosage: 12 MG, QD
     Route: 048
  3. EBASTEL [Concomitant]
     Dosage: UNK, QD
  4. LENDORMIN DAINIPPO [Concomitant]
     Dosage: 0.25 MG, QD
     Route: 048
  5. SILECE [Concomitant]
     Dosage: 1 MG, UNK
     Route: 048
  6. METHYCOBAL [Concomitant]
     Dosage: 0.5 MG, BID
     Route: 048
  7. BAYASPIRIN [Concomitant]
     Dosage: 100 MG, QD
     Route: 048
  8. ALFAROL [Concomitant]
     Dosage: 0.25 MUG, QD
     Route: 048
  9. ALESION [Concomitant]
     Dosage: 20/TIMES UNK, QD
     Route: 048
  10. RHUBARB [Concomitant]
     Dosage: UNK UNK, TID
     Route: 048
  11. PLETAAL [Concomitant]
     Dosage: 50 MG, TID
     Route: 048
  12. MIYA BM [Concomitant]
     Dosage: 1/TIME UNK, TID
     Route: 048
  13. ALOSITOL [Concomitant]
     Dosage: 50 MG, BID
     Route: 048
  14. FOSRENOL [Concomitant]
     Dosage: 750 MG, TID
     Route: 048

REACTIONS (2)
  - Altered state of consciousness [Recovered/Resolved]
  - Hypocalcaemia [Recovering/Resolving]
